FAERS Safety Report 9190324 (Version 1)
Quarter: 2013Q1

REPORT INFORMATION
  Report Type: Spontaneous
  Country: US (occurrence: None)
  Receive Date: 20130325
  Receipt Date: 20130325
  Transmission Date: 20140127
  Serious: No
  Sender: FDA-Public Use
  Company Number: None

PATIENT
  Sex: 0

DRUGS (1)
  1. CHILDREN^S ACETAMINOPHEN CHILDREN^S ACETAMINOPHEN PRECISION DOSE INC. 650 MG/20.3 ML [Suspect]

REACTIONS (1)
  - Product label issue [None]
